FAERS Safety Report 9196378 (Version 1)
Quarter: 2013Q1

REPORT INFORMATION
  Report Type: Spontaneous
  Country: RU (occurrence: RU)
  Receive Date: 20130328
  Receipt Date: 20130328
  Transmission Date: 20140127
  Serious: Yes (Hospitalization)
  Sender: FDA-Public Use
  Company Number: RU-ASTRAZENECA-2013SE19136

PATIENT
  Age: 23 Year
  Sex: Male
  Weight: 70 kg

DRUGS (5)
  1. MEROPENEM [Suspect]
     Indication: ANTIBIOTIC THERAPY
     Route: 042
     Dates: start: 20130303, end: 20130310
  2. TRAMAL [Concomitant]
     Indication: ANAESTHESIA
     Dates: start: 201303
  3. CLEXANE [Concomitant]
     Dates: start: 201303
  4. RINGER^S SOLUTION [Concomitant]
     Dates: start: 201303
  5. GLUCOSE [Concomitant]
     Dates: start: 201303

REACTIONS (1)
  - Hepatitis toxic [Recovered/Resolved]
